FAERS Safety Report 16702057 (Version 1)
Quarter: 2019Q4

REPORT INFORMATION
  Report Type: Spontaneous
  Country: US (occurrence: US)
  Receive Date: 20190813
  Receipt Date: 20190813
  Transmission Date: 20200122
  Serious: No
  Sender: FDA-Public Use
  Company Number: None

PATIENT
  Age: 62 Year
  Sex: Male
  Weight: 99 kg

DRUGS (1)
  1. BYDUREON [Suspect]
     Active Substance: EXENATIDE
     Indication: TYPE 2 DIABETES MELLITUS
     Dosage: ?          QUANTITY:1 INJECTION(S);OTHER FREQUENCY:ONCE-WEEKLY;?
     Route: 058

REACTIONS (9)
  - Injection site induration [None]
  - Injection site laceration [None]
  - Product complaint [None]
  - Device malfunction [None]
  - Product design issue [None]
  - Injection site haemorrhage [None]
  - Injection site pain [None]
  - Injection site bruising [None]
  - Device difficult to use [None]

NARRATIVE: CASE EVENT DATE: 20190801
